FAERS Safety Report 6528930-5 (Version None)
Quarter: 2009Q4

REPORT INFORMATION
  Report Type: 
  Country: None (occurrence: None)
  Receive Date: 20091224
  Receipt Date: 20091210
  Transmission Date: 20100525
  Serious: Yes (Life-Threatening, Hospitalization)
  Sender: FDA-Public Use
  Company Number: 09-AUR-10282

PATIENT
  Age: 35 Year
  Sex: Female

DRUGS (14)
  1. ONDANSETRON [Suspect]
     Dosage: 4MG TOTAL DOSE - IV
     Route: 042
  2. AMIODARONE HCL [Suspect]
     Indication: HYPOTENSION
     Dosage: 300MG TOTAL DOSE - UNK
  3. COCAINE [Suspect]
     Indication: ANAESTHESIA
     Dosage: 250MG TOTAL DOSE - NASAL
     Route: 045
  4. EPINEPHRINE [Suspect]
     Indication: ANAESTHESIA
     Dosage: 60MCG TOTAL DOSE- NASAL
     Route: 045
  5. EPINEPHRINE [Suspect]
     Indication: DRUG USE FOR UNKNOWN INDICATION
     Dosage: 1MG - X4 - IV BOLUS
     Route: 040
  6. LIDOCAINE 2% [Suspect]
     Indication: DRUG USE FOR UNKNOWN INDICATION
     Dosage: 100MG TOTAL DOSE - NASAL
     Route: 045
  7. OXYGEN [Suspect]
     Indication: ANAESTHESIA
     Dosage: UNK - UNK - UNK
     Route: 065
  8. SEVOFLURANE [Suspect]
     Dosage: UNK - UNK - INHALATION
     Route: 055
  9. ATROPINE [Concomitant]
  10. DICLOFENAC [Concomitant]
  11. FENTANYL [Concomitant]
  12. NITROUS OXIDE INHALATION [Concomitant]
  13. PROPOFOL [Concomitant]
  14. SODIUM BICARBONATE [Concomitant]

REACTIONS (6)
  - APNOEA [None]
  - BLOOD POTASSIUM DECREASED [None]
  - CARDIAC ARREST [None]
  - HYPOTENSION [None]
  - LONG QT SYNDROME [None]
  - VENTRICULAR FIBRILLATION [None]
